FAERS Safety Report 14683204 (Version 1)
Quarter: 2018Q1

REPORT INFORMATION
  Report Type: Spontaneous
  Country: US (occurrence: US)
  Receive Date: 20180326
  Receipt Date: 20180326
  Transmission Date: 20180509
  Serious: Yes (Other)
  Sender: FDA-Public Use
  Company Number: None

PATIENT
  Age: 36 Year
  Sex: Male
  Weight: 94.8 kg

DRUGS (1)
  1. SUBOXONE [Suspect]
     Active Substance: BUPRENORPHINE HYDROCHLORIDE\NALOXONE HYDROCHLORIDE
     Indication: DRUG DEPENDENCE
     Dosage: DOSE - 8/2 T TAB
     Route: 048
     Dates: start: 20180308, end: 20180313

REACTIONS (3)
  - Diarrhoea [None]
  - Headache [None]
  - Insomnia [None]

NARRATIVE: CASE EVENT DATE: 20180313
